FAERS Safety Report 14220807 (Version 2)
Quarter: 2018Q1

REPORT INFORMATION
  Report Type: Report from Study
  Country: JP (occurrence: JP)
  Receive Date: 20171124
  Receipt Date: 20180105
  Transmission Date: 20180508
  Serious: Yes (Hospitalization)
  Sender: FDA-Public Use
  Company Number: JP-ASTRAZENECA-2017SF18331

PATIENT
  Age: 27103 Day
  Sex: Female
  Weight: 40 kg

DRUGS (6)
  1. FASLODEX [Suspect]
     Active Substance: FULVESTRANT
     Indication: BREAST CANCER FEMALE
     Route: 030
     Dates: start: 20120220, end: 20130122
  2. FASLODEX [Suspect]
     Active Substance: FULVESTRANT
     Indication: BREAST CANCER FEMALE
     Route: 030
     Dates: start: 20130507, end: 20151005
  3. METHYCOBAL [Concomitant]
     Active Substance: METHYLCOBALAMIN
     Route: 048
     Dates: start: 20080709, end: 20150907
  4. TSUMURA GOSHAJINKIGAN EXTRACT GRANULES FOR ETHICAL USE [Concomitant]
     Route: 048
     Dates: end: 20151214
  5. MOHRUS TAPE [Concomitant]
     Active Substance: KETOPROFEN
     Dosage: DOSE UNKNOWN
     Route: 062
     Dates: start: 20100709, end: 20131029
  6. MAGNESIUM OXIDE. [Concomitant]
     Active Substance: MAGNESIUM OXIDE
     Route: 048
     Dates: start: 20080716

REACTIONS (1)
  - Acute myocardial infarction [Recovering/Resolving]

NARRATIVE: CASE EVENT DATE: 20121230
